FAERS Safety Report 4925555-X (Version None)
Quarter: 2006Q1

REPORT INFORMATION
  Report Type: 
  Country: None (occurrence: None)
  Receive Date: 20060228
  Receipt Date: 20040901
  Transmission Date: 20060701
  Serious: No
  Sender: FDA-Public Use
  Company Number: US-GLAXOSMITHKLINE-A0524236A

PATIENT
  Age: 12 Year
  Sex: Female

DRUGS (4)
  1. LAMICTAL [Suspect]
     Indication: BIPOLAR DISORDER
     Dosage: 100MG TWICE PER DAY
     Route: 048
  2. ZOLOFT [Concomitant]
  3. CHROMIUM PICOLINATE [Concomitant]
  4. LITHIUM CARBONATE [Concomitant]

REACTIONS (6)
  - AGITATION [None]
  - ALOPECIA [None]
  - DISTURBANCE IN ATTENTION [None]
  - HYPERGLYCAEMIA [None]
  - SEDATION [None]
  - WEIGHT INCREASED [None]
